FAERS Safety Report 16611001 (Version 1)
Quarter: 2019Q3

REPORT INFORMATION
  Report Type: Spontaneous
  Country: US (occurrence: US)
  Receive Date: 20190722
  Receipt Date: 20190722
  Transmission Date: 20191004
  Serious: No
  Sender: FDA-Public Use
  Company Number: US-FOUNDATIONCONSUMERHC-2019-US-007961

PATIENT
  Age: 25 Year
  Sex: Female

DRUGS (1)
  1. PLAN B ONE-STEP [Suspect]
     Active Substance: LEVONORGESTREL
     Indication: PRODUCT USED FOR UNKNOWN INDICATION
     Dosage: 1 DOSE ON 10-MAR-2019, 20-MAR-2019, AND 27-MAR-2019
     Route: 065
     Dates: start: 20190310, end: 20190327

REACTIONS (1)
  - Menstruation delayed [Unknown]
